FAERS Safety Report 7648947-7 (Version None)
Quarter: 2011Q3

REPORT INFORMATION
  Report Type: 
  Country: None (occurrence: None)
  Receive Date: 20110801
  Receipt Date: 20110719
  Transmission Date: 20111222
  Serious: Yes (Other)
  Sender: FDA-Public Use
  Company Number: DE-MYLANLABS-2011S1014862

PATIENT
  Age: 78 Year
  Sex: Female

DRUGS (1)
  1. ALENDRONATE SODIUM [Suspect]
     Indication: PRODUCT USED FOR UNKNOWN INDICATION
     Dosage: PRO WOCHE
     Route: 048
     Dates: start: 20040901, end: 20081001

REACTIONS (2)
  - OSTEONECROSIS OF JAW [None]
  - GINGIVAL PAIN [None]
